FAERS Safety Report 21500353 (Version 3)
Quarter: 2022Q4

REPORT INFORMATION
  Report Type: Report from Study
  Country: CO (occurrence: CO)
  Receive Date: 20221024
  Receipt Date: 20221118
  Transmission Date: 20230113
  Serious: Yes (Hospitalization)
  Sender: FDA-Public Use
  Company Number: CO-JNJFOC-20220929304

PATIENT
  Age: 68 Year
  Sex: Female
  Weight: 54 kg

DRUGS (2)
  1. IMBRUVICA [Suspect]
     Active Substance: IBRUTINIB
     Indication: Mantle cell lymphoma
     Route: 048
     Dates: start: 20190513, end: 20221028
  2. COVID-19 VACCINE [Concomitant]
     Indication: COVID-19 immunisation
     Dosage: FIRST DOSE?1 IN ONCE
     Route: 030
     Dates: start: 20210525, end: 20210525

REACTIONS (6)
  - Malignant neoplasm of eye [Recovered/Resolved]
  - Eye swelling [Not Recovered/Not Resolved]
  - Swelling of eyelid [Not Recovered/Not Resolved]
  - Adverse event [Recovered/Resolved]
  - Lacrimation increased [Not Recovered/Not Resolved]
  - Eye discharge [Recovered/Resolved]

NARRATIVE: CASE EVENT DATE: 20220827
